FAERS Safety Report 20815690 (Version 1)
Quarter: 2022Q2

REPORT INFORMATION
  Report Type: Spontaneous
  Country: US (occurrence: US)
  Receive Date: 20220511
  Receipt Date: 20220511
  Transmission Date: 20220721
  Serious: No
  Sender: FDA-Public Use
  Company Number: US-GALDERMA-US2021013526

PATIENT

DRUGS (6)
  1. DIFFERIN GEL [Suspect]
     Active Substance: ADAPALENE
     Indication: Acne
     Dosage: 1 DOSAGE FORM, QOD, EVERY OTHER NIGHT ON TOP OF MOISTURIZER FOR TWO WEEKS
     Route: 061
  2. DIFFERIN GEL [Suspect]
     Active Substance: ADAPALENE
     Dosage: 1 DOSAGE FORM, QD, EVERY NIGHT FOR TWO WEEKS
     Route: 061
  3. DIFFERIN DARK SPOT CORRECTING SERUM [Suspect]
     Active Substance: HYDROQUINONE
     Indication: Skin hyperpigmentation
     Dosage: 1 DOSAGE FORM, UNKNOWN FREQUENCY
     Route: 061
  4. Drunk Elephant^s vitamin C serum [Concomitant]
     Indication: Skin hyperpigmentation
     Dosage: ONLY IN MORNING
     Route: 065
  5. AHA [Concomitant]
     Indication: Product used for unknown indication
     Dosage: NO MORE THAN ONCE A WEEK
     Route: 065
  6. BUTYLATED HYDROXYANISOLE [Concomitant]
     Active Substance: BUTYLATED HYDROXYANISOLE
     Indication: Product used for unknown indication
     Dosage: UNK, QWK NO MORE THAN ONCE A WEEK
     Route: 065

REACTIONS (6)
  - Skin irritation [Recovered/Resolved]
  - Acne [Recovered/Resolved]
  - Skin hyperpigmentation [Not Recovered/Not Resolved]
  - Inappropriate schedule of product administration [Recovered/Resolved]
  - Underdose [Recovered/Resolved]
  - Drug ineffective [Unknown]
